FAERS Safety Report 21196953 (Version 1)
Quarter: 2022Q3

REPORT INFORMATION
  Report Type: Spontaneous
  Country: US (occurrence: None)
  Receive Date: 20220810
  Receipt Date: 20220810
  Transmission Date: 20221027
  Serious: No
  Sender: FDA-Public Use
  Company Number: None

PATIENT
  Age: 66 Year
  Sex: Female
  Weight: 60.3 kg

DRUGS (11)
  1. BAQSIMI [Suspect]
     Active Substance: GLUCAGON
     Indication: Blood glucose decreased
     Dates: start: 20220809, end: 20220809
  2. TRAZODONE [Concomitant]
     Active Substance: TRAZODONE HYDROCHLORIDE
  3. GABAPENTIN [Concomitant]
     Active Substance: GABAPENTIN
  4. OMEPRAZOLE [Concomitant]
     Active Substance: OMEPRAZOLE
  5. LEVOTHYROXINE [Concomitant]
     Active Substance: LEVOTHYROXINE
  6. PEPCID [Concomitant]
     Active Substance: FAMOTIDINE
  7. Nasal sprays for allergies [Concomitant]
  8. CLARITIN [Concomitant]
     Active Substance: LORATADINE
  9. ZYRTEC [Concomitant]
     Active Substance: CETIRIZINE HYDROCHLORIDE
  10. FISH OIL [Concomitant]
     Active Substance: FISH OIL
  11. GAVISCON [Concomitant]
     Active Substance: ALUMINUM HYDROXIDE\MAGNESIUM CARBONATE

REACTIONS (7)
  - Sinus pain [None]
  - Eye pain [None]
  - Headache [None]
  - Dizziness [None]
  - Crying [None]
  - Impaired work ability [None]
  - Eye contusion [None]

NARRATIVE: CASE EVENT DATE: 20220809
